FAERS Safety Report 4879502-X (Version None)
Quarter: 2006Q1

REPORT INFORMATION
  Report Type: 
  Country: None (occurrence: None)
  Receive Date: 20060110
  Receipt Date: 20050228
  Transmission Date: 20060701
  Serious: Yes (Hospitalization)
  Sender: FDA-Public Use
  Company Number: GBWYE468802MAR05

PATIENT
  Age: 69 Year
  Sex: Male

DRUGS (10)
  1. MYAMBUTOL [Suspect]
     Indication: PROSTATITIS
     Dosage: 900MG, QD,047
  2. MYAMBUTOL [Suspect]
     Indication: TUBERCULOSIS
     Dosage: 900MG, QD,047
  3. RIFATER [Suspect]
     Indication: PROSTATITIS
     Dosage: 5 TABS,QD,047
     Dates: start: 20040901
  4. RIFATER [Suspect]
     Indication: TUBERCULOSIS
     Dosage: 5 TABS,QD,047
     Dates: start: 20040901
  5. BENDROFLUAZIDE [Concomitant]
  6. METOPROLOL [Concomitant]
  7. RANITIDINE [Concomitant]
  8. ISOSORBIDE MONONITRATE [Concomitant]
  9. LANSOPRAZOLE [Concomitant]
  10. ASPIRIN [Concomitant]

REACTIONS (1)
  - HEPATITIS [None]
